FAERS Safety Report 7645417-7 (Version None)
Quarter: 2011Q3

REPORT INFORMATION
  Report Type: 
  Country: None (occurrence: None)
  Receive Date: 20110729
  Receipt Date: 20110720
  Transmission Date: 20111222
  Serious: Yes (Disabling)
  Sender: FDA-Public Use
  Company Number: AU-PURDUE-USA-2011-0072359

PATIENT
  Sex: Male

DRUGS (5)
  1. DOTHIEPIN                          /00160401/ [Concomitant]
     Indication: PRODUCT USED FOR UNKNOWN INDICATION
  2. OXYCODONE HCL [Suspect]
     Indication: PAIN
     Route: 048
  3. LITHIUM CARBONATE [Concomitant]
     Indication: PRODUCT USED FOR UNKNOWN INDICATION
  4. VENLAFAXINE [Suspect]
     Indication: PRODUCT USED FOR UNKNOWN INDICATION
  5. ESCITALOPRAM [Suspect]
     Indication: PRODUCT USED FOR UNKNOWN INDICATION

REACTIONS (9)
  - URINE OUTPUT DECREASED [None]
  - DISTURBANCE IN ATTENTION [None]
  - MYALGIA [None]
  - INSOMNIA [None]
  - FEELING OF BODY TEMPERATURE CHANGE [None]
  - DECREASED APPETITE [None]
  - SOMNOLENCE [None]
  - APATHY [None]
  - FATIGUE [None]
